FAERS Safety Report 8994399 (Version 1)
Quarter: 2012Q4

REPORT INFORMATION
  Report Type: Spontaneous
  Country: US (occurrence: None)
  Receive Date: 20121227
  Receipt Date: 20121227
  Transmission Date: 20130627
  Serious: No
  Sender: FDA-Public Use
  Company Number: None

PATIENT
  Sex: Female

DRUGS (1)
  1. GADAVIST [Suspect]
     Indication: COMPUTERISED TOMOGRAM
     Dosage: 7 ml once IV bolus
     Route: 040
     Dates: start: 20121204, end: 20121204

REACTIONS (1)
  - Urticaria [None]
